FAERS Safety Report 5715864-9 (Version None)
Quarter: 2008Q2

REPORT INFORMATION
  Report Type: 
  Country: None (occurrence: None)
  Receive Date: 20080424
  Receipt Date: 20080415
  Transmission Date: 20081010
  Serious: Yes (Other)
  Sender: FDA-Public Use
  Company Number: DE-JNJFOC-20080404055

PATIENT
  Age: 34 Year
  Sex: Male
  Weight: 63 kg

DRUGS (2)
  1. REMICADE [Suspect]
     Dosage: 4TH INFUSION OF INFLIXIMAB.
  2. REMICADE [Suspect]
     Indication: ANKYLOSING SPONDYLITIS

REACTIONS (5)
  - ANXIETY [None]
  - ERYTHEMA [None]
  - INFUSION RELATED REACTION [None]
  - TACHYCARDIA [None]
  - VERTIGO [None]
